FAERS Safety Report 6021794-8 (Version None)
Quarter: 2008Q4

REPORT INFORMATION
  Report Type: 
  Country: None (occurrence: None)
  Receive Date: 20081229
  Receipt Date: 20081218
  Transmission Date: 20090506
  Serious: No
  Sender: FDA-Public Use
  Company Number: JP-WYE-H07267808

PATIENT
  Sex: Female

DRUGS (3)
  1. HYPEN [Suspect]
     Indication: ALLERGY TEST
     Dosage: UNKNOWN
     Route: 048
  2. TIARAMIDE HYDROCHLORIDE [Suspect]
     Indication: ALLERGY TEST
     Dosage: UNKNOWN
     Route: 048
  3. MELOXICAM [Suspect]
     Indication: ALLERGY TEST
     Dosage: UNKNOWN
     Route: 048

REACTIONS (1)
  - ANALGESIC ASTHMA SYNDROME [None]
